FAERS Safety Report 22069206 (Version 1)
Quarter: 2023Q1

REPORT INFORMATION
  Report Type: Spontaneous
  Country: US (occurrence: None)
  Receive Date: 20230306
  Receipt Date: 20230306
  Transmission Date: 20230417
  Serious: Yes (Other)
  Sender: FDA-Public Use
  Company Number: None

PATIENT
  Age: 73 Year
  Sex: Female
  Weight: 137 kg

DRUGS (1)
  1. VALSARTAN [Suspect]
     Active Substance: VALSARTAN
     Indication: Hypertension
     Dosage: FREQUENCY : DAILY;?
     Route: 048
     Dates: start: 20230302, end: 20230305

REACTIONS (6)
  - Product substitution issue [None]
  - Dysphoria [None]
  - Headache [None]
  - Dyspnoea [None]
  - Hyperhidrosis [None]
  - Tachycardia [None]

NARRATIVE: CASE EVENT DATE: 20230306
